FAERS Safety Report 15996435 (Version 1)
Quarter: 2019Q1

REPORT INFORMATION
  Report Type: Spontaneous
  Country: US (occurrence: US)
  Receive Date: 20190222
  Receipt Date: 20190222
  Transmission Date: 20190418
  Serious: Yes (Hospitalization, Disabling)
  Sender: FDA-Public Use
  Company Number: US-JNJFOC-20190223980

PATIENT
  Age: 47 Year
  Sex: Male

DRUGS (1)
  1. INVOKANA [Suspect]
     Active Substance: CANAGLIFLOZIN
     Indication: TYPE 2 DIABETES MELLITUS
     Route: 048
     Dates: start: 20150409

REACTIONS (10)
  - Foot fracture [Unknown]
  - Soft tissue necrosis [Unknown]
  - Diabetes mellitus inadequate control [Unknown]
  - Impaired healing [Unknown]
  - Joint dislocation [Unknown]
  - Amputation [Unknown]
  - Injury [Unknown]
  - Osteomyelitis chronic [Unknown]
  - Gangrene [Unknown]
  - Diabetic foot infection [Unknown]

NARRATIVE: CASE EVENT DATE: 201604
